FAERS Safety Report 9914002 (Version 5)
Quarter: 2014Q2

REPORT INFORMATION
  Report Type: Spontaneous
  Country: US (occurrence: US)
  Receive Date: 20140220
  Receipt Date: 20140527
  Transmission Date: 20141212
  Serious: Yes (Death, Hospitalization)
  Sender: FDA-Public Use
  Company Number: US-GLAXOSMITHKLINE-A0833453A

PATIENT
  Age: 73 Year
  Sex: Male
  Weight: 74.5 kg

DRUGS (1)
  1. AVANDIA [Suspect]
     Indication: TYPE 2 DIABETES MELLITUS
     Dosage: 4MG PER DAY
     Route: 048
     Dates: start: 2001, end: 20070418

REACTIONS (9)
  - Bladder cancer [Fatal]
  - Cardiac failure congestive [Unknown]
  - Thrombosis [Unknown]
  - Transient ischaemic attack [Unknown]
  - Myocardial infarction [Unknown]
  - Lung neoplasm malignant [Unknown]
  - Carotid artery stenosis [Unknown]
  - Anaemia [Unknown]
  - Oedema [Unknown]
